FAERS Safety Report 7630310-6 (Version None)
Quarter: 2011Q3

REPORT INFORMATION
  Report Type: 
  Country: None (occurrence: None)
  Receive Date: 20110722
  Receipt Date: 20110719
  Transmission Date: 20111222
  Serious: Yes (Life-Threatening, Hospitalization, Other)
  Sender: FDA-Public Use
  Company Number: CHPA2011DE08775

PATIENT
  Age: 49 Year
  Sex: Female
  Weight: 81 kg

DRUGS (3)
  1. MESALAMINE [Suspect]
     Indication: COLITIS ULCERATIVE
     Dosage: 2000 MG, BID
     Route: 048
     Dates: start: 20110302, end: 20110322
  2. IBUPROFEN [Suspect]
     Dosage: 400 MG, 8X1 DAILY IF REQUIRED
     Route: 048
     Dates: start: 20110314, end: 20110318
  3. IBUPROFEN [Suspect]
     Dosage: 400 MG, QD, 1-6 TIMES WEEKLY
     Route: 048
     Dates: start: 20110104

REACTIONS (6)
  - ABDOMINAL PAIN UPPER [None]
  - OVERDOSE [None]
  - PANCREATITIS ACUTE [None]
  - COLITIS ULCERATIVE [None]
  - CHOLELITHIASIS [None]
  - HELICOBACTER GASTRITIS [None]
